FAERS Safety Report 14543703 (Version 2)
Quarter: 2018Q1

REPORT INFORMATION
  Report Type: Spontaneous
  Country: FR (occurrence: FR)
  Receive Date: 20180216
  Receipt Date: 20180309
  Transmission Date: 20180509
  Serious: No
  Sender: FDA-Public Use
  Company Number: FR-ELI_LILLY_AND_COMPANY-FR201802001789

PATIENT
  Sex: Male
  Weight: 63 kg

DRUGS (1)
  1. TADALAFIL [Suspect]
     Active Substance: TADALAFIL
     Indication: ERECTILE DYSFUNCTION
     Dosage: 20 MG, MONTHLY (1/M)
     Route: 065
     Dates: start: 20180127

REACTIONS (8)
  - Pain [Recovered/Resolved]
  - Tongue coated [Recovered/Resolved]
  - Ocular hyperaemia [Recovered/Resolved]
  - Dry mouth [Unknown]
  - Lip dry [Unknown]
  - Feeling abnormal [Unknown]
  - Abdominal pain lower [Recovered/Resolved]
  - Erythema [Recovered/Resolved]
